FAERS Safety Report 22880549 (Version 3)
Quarter: 2024Q2

REPORT INFORMATION
  Report Type: Spontaneous
  Country: IT (occurrence: IT)
  Receive Date: 20230829
  Receipt Date: 20240424
  Transmission Date: 20240716
  Serious: Yes (Other)
  Sender: FDA-Public Use
  Company Number: IT-ROCHE-3406495

PATIENT
  Age: 59 Year
  Sex: Male
  Weight: 66 kg

DRUGS (27)
  1. IMBRUVICA [Suspect]
     Active Substance: IBRUTINIB
     Indication: Mantle cell lymphoma
     Route: 048
     Dates: start: 20220920, end: 20230126
  2. DEXAMETHASONE [Suspect]
     Active Substance: DEXAMETHASONE
     Indication: Mantle cell lymphoma
     Dosage: LAST CYCLE ON 30/MAR/2022
     Route: 065
     Dates: start: 20211202, end: 20220606
  3. BACTRIM [Concomitant]
     Active Substance: SULFAMETHOXAZOLE\TRIMETHOPRIM
     Indication: Product used for unknown indication
  4. PREGABALIN [Concomitant]
     Active Substance: PREGABALIN
     Indication: Product used for unknown indication
  5. KEPPRA [Concomitant]
     Active Substance: LEVETIRACETAM
     Indication: Product used for unknown indication
     Dosage: OFF LABEL USE
  6. BENDAMUSTINE [Suspect]
     Active Substance: BENDAMUSTINE
     Indication: Mantle cell lymphoma
     Dosage: DAY1
     Route: 065
     Dates: start: 20230220, end: 20230407
  7. RITUXIMAB [Suspect]
     Active Substance: RITUXIMAB
     Indication: Mantle cell lymphoma
     Dosage: LAST CYCLE ON 30/MAR/2022
     Route: 065
     Dates: start: 20211202, end: 20220606
  8. RITUXIMAB [Suspect]
     Active Substance: RITUXIMAB
     Indication: Mantle cell lymphoma
     Route: 065
     Dates: start: 20230220, end: 20230407
  9. ERYTHROPOIETIN [Concomitant]
     Active Substance: ERYTHROPOIETIN
     Indication: Product used for unknown indication
  10. ACYCLOVIR [Concomitant]
     Active Substance: ACYCLOVIR
     Indication: Product used for unknown indication
  11. PREDNISONE [Suspect]
     Active Substance: PREDNISONE
     Indication: Mantle cell lymphoma
     Dosage: LAST CYCLE ON 30/MAR/2022
     Route: 065
     Dates: start: 20211202, end: 20220606
  12. BISOPROLOL [Concomitant]
     Active Substance: BISOPROLOL\BISOPROLOL FUMARATE
     Indication: Product used for unknown indication
  13. CYTARABINE [Suspect]
     Active Substance: CYTARABINE
     Indication: Mantle cell lymphoma
     Route: 065
     Dates: start: 20220606
  14. CYTARABINE [Suspect]
     Active Substance: CYTARABINE
     Indication: Mantle cell lymphoma
     Dosage: LAST CYCLE ON 30/MAR/2022
     Route: 065
     Dates: start: 20211202, end: 20220606
  15. CYTARABINE [Suspect]
     Active Substance: CYTARABINE
     Indication: Mantle cell lymphoma
     Dosage: ON DAY1, DAY2, DAY 3
     Route: 065
     Dates: start: 20230220, end: 20230407
  16. DOXORUBICIN HYDROCHLORIDE [Suspect]
     Active Substance: DOXORUBICIN HYDROCHLORIDE
     Indication: Mantle cell lymphoma
     Dosage: LAST CYCLE ON 30/MAR/2022
     Route: 065
     Dates: start: 20211202, end: 20220606
  17. OXALIPLATIN [Suspect]
     Active Substance: OXALIPLATIN
     Indication: Mantle cell lymphoma
     Dosage: LAST CYCLE ON 30/MAR/2022
     Route: 065
     Dates: start: 20211202, end: 20220606
  18. VINCRISTINE SULFATE [Suspect]
     Active Substance: VINCRISTINE SULFATE
     Indication: Mantle cell lymphoma
     Dosage: LAST CYCLE ON 30/MAR/2022
     Route: 065
     Dates: start: 20211202, end: 20220606
  19. CYCLOPHOSPHAMIDE [Suspect]
     Active Substance: CYCLOPHOSPHAMIDE
     Indication: Mantle cell lymphoma
     Dosage: LAST CYCLE ON 30/MAR/2022
     Route: 065
     Dates: start: 20211202, end: 20220606
  20. DEURSIL [Concomitant]
     Active Substance: URSODIOL
     Indication: Product used for unknown indication
  21. FOTEMUSTINE [Suspect]
     Active Substance: FOTEMUSTINE
     Indication: Mantle cell lymphoma
     Route: 065
     Dates: start: 20220606
  22. TECARTUS [Suspect]
     Active Substance: BREXUCABTAGENE AUTOLEUCEL
     Indication: Mantle cell lymphoma
     Route: 065
     Dates: start: 20230531
  23. MELPHALAN [Suspect]
     Active Substance: MELPHALAN
     Indication: Mantle cell lymphoma
     Route: 065
     Dates: start: 20220606
  24. CYTARABINE [Suspect]
     Active Substance: CYTARABINE
     Indication: Mantle cell lymphoma
     Route: 065
     Dates: start: 20230220, end: 20230407
  25. CYTARABINE [Suspect]
     Active Substance: CYTARABINE
     Indication: Mantle cell lymphoma
     Dosage: LAST CYCLE ON 30/MAR/2022
     Route: 065
     Dates: start: 20211202, end: 20220606
  26. CYTARABINE [Suspect]
     Active Substance: CYTARABINE
     Indication: Mantle cell lymphoma
     Route: 065
     Dates: start: 20220606
  27. ETOPOSIDE [Suspect]
     Active Substance: ETOPOSIDE
     Indication: Mantle cell lymphoma
     Route: 065
     Dates: start: 20220606

REACTIONS (4)
  - Therapy non-responder [Unknown]
  - Off label use [Unknown]
  - Drug ineffective [Unknown]
  - Drug ineffective [Unknown]
